FAERS Safety Report 22391898 (Version 1)
Quarter: 2023Q2

REPORT INFORMATION
  Report Type: Other
  Country: GB (occurrence: GB)
  Receive Date: 20230601
  Receipt Date: 20230601
  Transmission Date: 20230721
  Serious: Yes (Other)
  Sender: FDA-Public Use
  Company Number: GB-BAXTER-2023BAX021673

PATIENT

DRUGS (6)
  1. DEXAMETHASONE [Suspect]
     Active Substance: DEXAMETHASONE
     Indication: Antiemetic supportive care
     Dosage: 6.6 MG, AT UNSPECIFIED FREQUENCY
     Route: 042
     Dates: start: 20230509, end: 20230509
  2. ATROPINE [Suspect]
     Active Substance: ATROPINE
     Indication: Drug therapy
     Dosage: 0.6 MG, AT UNSPECIFIED FREQUENCY
     Route: 042
     Dates: start: 20230509, end: 20230509
  3. CETUXIMAB [Suspect]
     Active Substance: CETUXIMAB
     Indication: Product used for unknown indication
     Dosage: 1000 MG IN 500 ML SODIUM CHLORIDE
     Route: 042
     Dates: start: 20230509, end: 20230509
  4. CHLORPHENIRAMINE MALEATE [Suspect]
     Active Substance: CHLORPHENIRAMINE MALEATE
     Indication: Antiallergic therapy
     Dosage: 10 MG, AT UNSPECIFIED FREQUENCY
     Route: 042
     Dates: start: 20230509, end: 20230509
  5. PALONOSETRON [Suspect]
     Active Substance: PALONOSETRON
     Indication: Antiemetic supportive care
     Dosage: 0.25 MG AT UNSPECIFIED FREQUENCY
     Route: 042
     Dates: start: 20230509, end: 20230509
  6. SODIUM CHLORIDE [Suspect]
     Active Substance: SODIUM CHLORIDE
     Indication: Medication dilution
     Dosage: 500 ML
     Route: 042
     Dates: start: 20230509, end: 20230509

REACTIONS (4)
  - Off label use [Unknown]
  - Hypotension [Recovered/Resolved]
  - Chills [Recovered/Resolved]
  - Urticaria [Recovered/Resolved]

NARRATIVE: CASE EVENT DATE: 20230509
